FAERS Safety Report 14830092 (Version 1)
Quarter: 2018Q2

REPORT INFORMATION
  Report Type: Report from Study
  Country: US (occurrence: US)
  Receive Date: 20180430
  Receipt Date: 20180430
  Transmission Date: 20180711
  Serious: Yes (Other)
  Sender: FDA-Public Use
  Company Number: US-REGENERON PHARMACEUTICALS, INC.-2018-18749

PATIENT

DRUGS (10)
  1. MAXALT [Concomitant]
     Active Substance: RIZATRIPTAN BENZOATE
     Indication: PRODUCT USED FOR UNKNOWN INDICATION
  2. BIOTIN [Concomitant]
     Active Substance: BIOTIN
     Indication: PRODUCT USED FOR UNKNOWN INDICATION
  3. EYLEA [Suspect]
     Active Substance: AFLIBERCEPT
     Indication: NEOVASCULAR AGE-RELATED MACULAR DEGENERATION
     Dosage: OD
     Route: 031
     Dates: start: 20160217
  4. CALCIUM [Concomitant]
     Active Substance: CALCIUM
     Indication: PRODUCT USED FOR UNKNOWN INDICATION
  5. VITAMIN C [Concomitant]
     Active Substance: ASCORBIC ACID
     Indication: PRODUCT USED FOR UNKNOWN INDICATION
  6. ZYRTEC-D 12HR [Concomitant]
     Indication: PRODUCT USED FOR UNKNOWN INDICATION
     Dosage: CETIRIZINE DIHYDROCHLORIDE 5 MG/PSEUDOEPHEDRINE HYDROCHLORIDE 120 MG
  7. EYLEA [Suspect]
     Active Substance: AFLIBERCEPT
     Indication: CHOROIDAL NEOVASCULARISATION
     Dosage: OD, DOSE #8, LAST PRIOR EVENT
     Route: 031
     Dates: start: 20170823, end: 20170823
  8. LUCENTIS [Suspect]
     Active Substance: RANIBIZUMAB
     Indication: CHOROIDAL NEOVASCULARISATION
     Dosage: OD
     Dates: start: 20180314, end: 20180314
  9. LUCENTIS [Suspect]
     Active Substance: RANIBIZUMAB
     Indication: NEOVASCULAR AGE-RELATED MACULAR DEGENERATION
     Dosage: OD
  10. VITAMIN D                          /00107901/ [Concomitant]
     Active Substance: ERGOCALCIFEROL
     Indication: PRODUCT USED FOR UNKNOWN INDICATION

REACTIONS (10)
  - Macular fibrosis [Unknown]
  - Vitreous detachment [Unknown]
  - Cataract [Unknown]
  - Dry age-related macular degeneration [Unknown]
  - Keratomileusis [Unknown]
  - Eye inflammation [Recovered/Resolved]
  - Uveitis [Recovered/Resolved]
  - Vitrectomy [Recovered/Resolved]
  - Wrong technique in product usage process [Unknown]
  - Photopsia [Unknown]

NARRATIVE: CASE EVENT DATE: 20160616
